FAERS Safety Report 6986723-9 (Version None)
Quarter: 2010Q3

REPORT INFORMATION
  Report Type: 
  Country: None (occurrence: None)
  Receive Date: 20100915
  Receipt Date: 20090727
  Transmission Date: 20110219
  Serious: No
  Sender: FDA-Public Use
  Company Number: US-WYE-H10341809

PATIENT
  Age: 55 Year
  Sex: Male
  Weight: 95.34 kg

DRUGS (2)
  1. PRISTIQ [Suspect]
     Indication: DEPRESSION
     Route: 048
     Dates: start: 20090726
  2. IBUPROFEN [Concomitant]

REACTIONS (4)
  - ABNORMAL DREAMS [None]
  - DISTURBANCE IN SEXUAL AROUSAL [None]
  - DRY MOUTH [None]
  - POLYDIPSIA [None]
